FAERS Safety Report 23030096 (Version 1)
Quarter: 2023Q4

REPORT INFORMATION
  Report Type: Spontaneous
  Country: CA (occurrence: None)
  Receive Date: 20231005
  Receipt Date: 20231005
  Transmission Date: 20240110
  Serious: Yes (Hospitalization, Other)
  Sender: FDA-Public Use
  Company Number: 2023A224150

PATIENT
  Age: 56 Year
  Sex: Female

DRUGS (1)
  1. DAPAGLIFLOZIN [Suspect]
     Active Substance: DAPAGLIFLOZIN
     Dosage: 10 MG, EVERYDAY, EVERY MORNING
     Route: 048

REACTIONS (5)
  - Bacterial infection [Unknown]
  - Sepsis [Unknown]
  - Fournier^s gangrene [Unknown]
  - Abscess [Unknown]
  - Malaise [Unknown]

NARRATIVE: CASE EVENT DATE: 20230619
